FAERS Safety Report 17226040 (Version 7)
Quarter: 2020Q1

REPORT INFORMATION
  Report Type: Spontaneous
  Country: CA (occurrence: CA)
  Receive Date: 20200102
  Receipt Date: 20200327
  Transmission Date: 20200409
  Serious: Yes (Hospitalization, Other)
  Sender: FDA-Public Use
  Company Number: CA-CELLTRION INC.-2019CA026756

PATIENT

DRUGS (21)
  1. DIPHENHYDRAMINE. [Concomitant]
     Active Substance: DIPHENHYDRAMINE
     Dosage: 50 MG, UNK
     Route: 042
     Dates: start: 20200223, end: 20200223
  2. INFLECTRA [Suspect]
     Active Substance: INFLIXIMAB-DYYB
     Dosage: 600 MG AT 0, 2, 6 WEEKS
     Route: 042
     Dates: start: 20191130
  3. INFLECTRA [Suspect]
     Active Substance: INFLIXIMAB-DYYB
     Dosage: 600 MG, EVERY 4 WEEKS
     Route: 042
     Dates: start: 20191223
  4. INFLECTRA [Suspect]
     Active Substance: INFLIXIMAB-DYYB
     Dosage: 600 MG, EVERY 4 WEEKS
     Route: 042
     Dates: start: 20200125
  5. PREDNISONE. [Concomitant]
     Active Substance: PREDNISONE
     Dosage: 40 MG, DAILY (TAPERING)
     Route: 048
     Dates: start: 201911
  6. ASACOL [Concomitant]
     Active Substance: MESALAMINE
     Dosage: 6400 MG, DAILY
     Dates: start: 2019
  7. INFLECTRA [Suspect]
     Active Substance: INFLIXIMAB-DYYB
     Indication: COLITIS ULCERATIVE
     Dosage: 600 MG AT 0, 2, 6 WEEKS
     Route: 042
     Dates: start: 20191021
  8. INFLECTRA [Suspect]
     Active Substance: INFLIXIMAB-DYYB
     Dosage: 600 MG, EVERY 4 WEEKS
     Route: 042
     Dates: start: 20200223
  9. DIPHENHYDRAMINE. [Concomitant]
     Active Substance: DIPHENHYDRAMINE
     Indication: PREMEDICATION
     Dosage: 50 MG, UNK
  10. INFLECTRA [Suspect]
     Active Substance: INFLIXIMAB-DYYB
     Dosage: 600 MG AT 0, 2, 6 WEEKS
     Route: 042
     Dates: start: 20191104
  11. ACETAMINOPHEN. [Concomitant]
     Active Substance: ACETAMINOPHEN
     Indication: PREMEDICATION
     Dosage: 650 MG, UNK
  12. PREDNISONE. [Concomitant]
     Active Substance: PREDNISONE
     Dosage: 20 MG, DAILY (TAPERING 5 MG WEEKLY)
     Route: 048
     Dates: start: 2019, end: 201911
  13. INFLECTRA [Suspect]
     Active Substance: INFLIXIMAB-DYYB
     Dosage: 600 MG AT 0, 2, 6 WEEKS
     Route: 042
     Dates: start: 20191130
  14. INFLECTRA [Suspect]
     Active Substance: INFLIXIMAB-DYYB
     Dosage: 600 MG, EVERY 4 WEEKS
     Route: 042
     Dates: start: 20200223
  15. PREDNISONE. [Concomitant]
     Active Substance: PREDNISONE
     Dosage: 17.5 MG, UNK (WEANING OFF)
  16. ASACOL [Concomitant]
     Active Substance: MESALAMINE
     Dosage: 4 DF (OF 800 MG) 2X/DAY
     Route: 065
     Dates: start: 2019
  17. CORTIMENT [BUDESONIDE] [Concomitant]
     Active Substance: BUDESONIDE
     Dosage: UNK
     Route: 065
  18. PREDNISONE. [Concomitant]
     Active Substance: PREDNISONE
     Dosage: 40 MG, DAILY
     Dates: start: 2019
  19. PREDNISONE. [Concomitant]
     Active Substance: PREDNISONE
     Dosage: 40 MG, DAILY (TAPERING)
     Route: 048
     Dates: start: 201911
  20. IMURAN [Concomitant]
     Active Substance: AZATHIOPRINE
     Dosage: 4 DF, 1X/DAY
     Route: 065
  21. SALOFALK [MESALAZINE] [Concomitant]
     Active Substance: MESALAMINE
     Dosage: UNK
     Route: 065

REACTIONS (17)
  - Acne [Unknown]
  - Flushing [Recovered/Resolved]
  - Back pain [Recovered/Resolved]
  - Condition aggravated [Not Recovered/Not Resolved]
  - Arthralgia [Recovered/Resolved]
  - Inflammation [Unknown]
  - Clostridium difficile infection [Recovering/Resolving]
  - Blindness unilateral [Unknown]
  - Vitreous disorder [Unknown]
  - Furuncle [Recovered/Resolved]
  - Fatigue [Unknown]
  - Chest discomfort [Recovered/Resolved]
  - Haemorrhage [Recovered/Resolved]
  - Blood pressure fluctuation [Not Recovered/Not Resolved]
  - Scleral discolouration [Unknown]
  - Peripheral swelling [Unknown]
  - Gait inability [Unknown]

NARRATIVE: CASE EVENT DATE: 2019
